FAERS Safety Report 4948727-7 (Version None)
Quarter: 2006Q1

REPORT INFORMATION
  Report Type: 
  Country: None (occurrence: None)
  Receive Date: 20060313
  Receipt Date: 20060301
  Transmission Date: 20060701
  Serious: Yes (Hospitalization)
  Sender: FDA-Public Use
  Company Number: GBWYE439901MAR06

PATIENT
  Age: 26 Year
  Sex: Female

DRUGS (3)
  1. EFFEXOR XR [Suspect]
     Indication: POSTPARTUM DEPRESSION
     Dosage: 75 MG 1X PER 1 DAY OAL; SEE IMAGE
     Route: 048
     Dates: end: 20060101
  2. EFFEXOR XR [Suspect]
     Indication: POSTPARTUM DEPRESSION
     Dosage: 75 MG 1X PER 1 DAY OAL; SEE IMAGE
     Route: 048
     Dates: start: 20060101
  3. CIPROFLOXACIN [Suspect]
     Indication: URINARY TRACT INFECTION
     Dosage: 400 MG 2X PER 1 DAY
     Dates: start: 20060131, end: 20060206

REACTIONS (10)
  - CONFUSIONAL STATE [None]
  - DISINHIBITION [None]
  - DISORIENTATION [None]
  - DRUG WITHDRAWAL SYNDROME [None]
  - ELEVATED MOOD [None]
  - EXTRAPYRAMIDAL DISORDER [None]
  - HALLUCINATIONS, MIXED [None]
  - HYPOAESTHESIA [None]
  - THINKING ABNORMAL [None]
  - URINARY TRACT INFECTION [None]
